FAERS Safety Report 9539380 (Version 2)
Quarter: 2013Q3

REPORT INFORMATION
  Report Type: Spontaneous
  Country: DE (occurrence: DE)
  Receive Date: 20130920
  Receipt Date: 20130920
  Transmission Date: 20140515
  Serious: Yes (Other)
  Sender: FDA-Public Use
  Company Number: DE-ROCHE-1263842

PATIENT
  Age: 72 Year
  Sex: Female
  Weight: 78 kg

DRUGS (7)
  1. XELODA [Suspect]
     Indication: BREAST CANCER METASTATIC
     Dosage: 2X3000MG PER DAY FOR 5-6 DAYS
     Route: 048
  2. HERCEPTIN [Concomitant]
     Indication: BREAST CANCER METASTATIC
  3. LAPATINIB [Concomitant]
     Dosage: 250MG 5X PER DAY
     Route: 048
     Dates: start: 20130507
  4. LAPATINIB [Concomitant]
     Route: 048
     Dates: start: 20130515
  5. EXEMESTANE [Concomitant]
     Route: 048
     Dates: start: 20130826
  6. LISINOPRIL [Concomitant]
     Indication: HYPERTENSION
     Route: 048
     Dates: start: 2003
  7. ZOPICLONE [Concomitant]
     Indication: SLEEP DISORDER
     Route: 048

REACTIONS (3)
  - Diarrhoea [Recovered/Resolved]
  - Skin toxicity [Recovered/Resolved]
  - Overdose [Unknown]
